FAERS Safety Report 4844755-0 (Version None)
Quarter: 2005Q4

REPORT INFORMATION
  Report Type: 
  Country: None (occurrence: None)
  Receive Date: 20051129
  Receipt Date: 20051122
  Transmission Date: 20060501
  Serious: Yes (Life-Threatening)
  Sender: FDA-Public Use
  Company Number: HQWYE692123NOV05

PATIENT
  Sex: Male

DRUGS (1)
  1. EFFEXOR XR [Suspect]
     Dosage: 150 MG 1X PER 1 DAY, ORAL
     Route: 048
     Dates: start: 20040601

REACTIONS (5)
  - AGGRESSION [None]
  - AKATHISIA [None]
  - HOMICIDAL IDEATION [None]
  - SEROTONIN SYNDROME [None]
  - SUICIDAL IDEATION [None]
